FAERS Safety Report 10714102 (Version 3)
Quarter: 2015Q2

REPORT INFORMATION
  Report Type: Report from Study
  Country: HU (occurrence: HU)
  Receive Date: 20150115
  Receipt Date: 20150416
  Transmission Date: 20150821
  Serious: Yes (Hospitalization, Other)
  Sender: FDA-Public Use
  Company Number: HU-GILEAD-2015-0131688

PATIENT
  Age: 69 Year
  Sex: Male
  Weight: 84.6 kg

DRUGS (12)
  1. SUPRASTIN [Concomitant]
     Active Substance: CHLOROPYRAMINE HYDROCHLORIDE
     Route: 048
     Dates: start: 20141215
  2. MILURIT [Concomitant]
     Active Substance: ALLOPURINOL
     Route: 048
     Dates: start: 20141215
  3. RITUXIMAB [Suspect]
     Active Substance: RITUXIMAB
     Indication: CHRONIC LYMPHOCYTIC LEUKAEMIA
     Dosage: 757 MG, CYCLICAL
     Route: 042
     Dates: start: 20141216
  4. ONDANSETRON [Concomitant]
     Active Substance: ONDANSETRON
     Route: 042
     Dates: start: 20141215
  5. HERPESIN                           /00587301/ [Concomitant]
     Route: 048
     Dates: start: 20141215
  6. SOLU-MEDROL [Concomitant]
     Active Substance: METHYLPREDNISOLONE SODIUM SUCCINATE
     Route: 042
     Dates: start: 20141215
  7. ASPIRIN. [Concomitant]
     Active Substance: ASPIRIN
     Indication: MYOCARDIAL ISCHAEMIA
     Route: 048
     Dates: start: 20140224
  8. IDELALISIB [Suspect]
     Active Substance: IDELALISIB
     Indication: CHRONIC LYMPHOCYTIC LEUKAEMIA
     Dosage: 150 MG, BID
     Route: 048
     Dates: start: 20141216
  9. PARACETAMOL [Concomitant]
     Active Substance: ACETAMINOPHEN
     Route: 048
     Dates: start: 20141215
  10. BENDAMUSTINE [Suspect]
     Active Substance: BENDAMUSTINE
     Indication: CHRONIC LYMPHOCYTIC LEUKAEMIA
     Dosage: 182 MG, CYCLICAL
     Route: 042
     Dates: start: 20141216, end: 20141216
  11. BENDAMUSTINE [Suspect]
     Active Substance: BENDAMUSTINE
     Dosage: 182 UNK, UNK
     Route: 042
     Dates: start: 20141217, end: 20141217
  12. SUMETROLIM [Concomitant]
     Route: 048
     Dates: start: 20141215

REACTIONS (1)
  - Tumour lysis syndrome [Recovered/Resolved]

NARRATIVE: CASE EVENT DATE: 20141222
